FAERS Safety Report 13333215 (Version 4)
Quarter: 2017Q3

REPORT INFORMATION
  Report Type: Spontaneous
  Country: JP (occurrence: JP)
  Receive Date: 20170313
  Receipt Date: 20170816
  Transmission Date: 20171127
  Serious: Yes (Hospitalization)
  Sender: FDA-Public Use
  Company Number: JP-BAUSCH-BL-2016-031117

PATIENT
  Age: 6 Decade
  Sex: Female

DRUGS (10)
  1. METGLUCO [Concomitant]
     Active Substance: METFORMIN HYDROCHLORIDE
     Indication: TYPE 2 DIABETES MELLITUS
     Route: 048
  2. ZETIA [Concomitant]
     Active Substance: EZETIMIBE
     Indication: HYPERLIPIDAEMIA
     Route: 048
  3. LAFUTIDINE [Concomitant]
     Active Substance: LAFUTIDINE
     Indication: GASTROOESOPHAGEAL REFLUX DISEASE
     Route: 048
  4. EQUA [Concomitant]
     Active Substance: VILDAGLIPTIN
     Indication: TYPE 2 DIABETES MELLITUS
     Route: 048
  5. LOCOID [Concomitant]
     Active Substance: HYDROCORTISONE BUTYRATE
     Indication: PRODUCT USED FOR UNKNOWN INDICATION
     Route: 062
  6. TOPSYM [Concomitant]
     Indication: PRODUCT USED FOR UNKNOWN INDICATION
     Route: 062
  7. ANTEBATE [Concomitant]
     Active Substance: BETAMETHASONE DIPROPIONATE
     Indication: PRODUCT USED FOR UNKNOWN INDICATION
     Route: 062
  8. LUMICEF [Suspect]
     Active Substance: BRODALUMAB
     Indication: PSORIATIC ARTHROPATHY
     Route: 058
     Dates: start: 20161122, end: 20161129
  9. LUMICEF [Suspect]
     Active Substance: BRODALUMAB
     Route: 058
     Dates: start: 20170313, end: 20170606
  10. OLOPATADINE HYDROCHLORIDE. [Concomitant]
     Active Substance: OLOPATADINE HYDROCHLORIDE
     Indication: DERMATITIS ATOPIC
     Route: 048

REACTIONS (3)
  - Erysipelas [Recovering/Resolving]
  - Gastroenteritis [Recovering/Resolving]
  - Dermatitis atopic [Not Recovered/Not Resolved]

NARRATIVE: CASE EVENT DATE: 20161206
